FAERS Safety Report 18648210 (Version 1)
Quarter: 2020Q4

REPORT INFORMATION
  Report Type: Spontaneous
  Country: US (occurrence: US)
  Receive Date: 20201221
  Receipt Date: 20201221
  Transmission Date: 20210114
  Serious: Yes (Hospitalization)
  Sender: FDA-Public Use
  Company Number: None

PATIENT
  Sex: Female

DRUGS (9)
  1. DOXAZOSIN [Concomitant]
     Active Substance: DOXAZOSIN MESYLATE
  2. AVONEX [Suspect]
     Active Substance: INTERFERON BETA-1A
     Indication: MULTIPLE SCLEROSIS
     Dosage: ?          OTHER FREQUENCY:ONCE WEEKLY;?
     Route: 030
     Dates: start: 20190118
  3. ONDANSETRON [Concomitant]
     Active Substance: ONDANSETRON
  4. FAMOTIDINE. [Concomitant]
     Active Substance: FAMOTIDINE
  5. XARELTO [Concomitant]
     Active Substance: RIVAROXABAN
  6. ALPRAZOLAM. [Concomitant]
     Active Substance: ALPRAZOLAM
  7. CARVEDILOL. [Concomitant]
     Active Substance: CARVEDILOL
  8. OMEPRAZOLE. [Concomitant]
     Active Substance: OMEPRAZOLE
  9. ESTRADIOL. [Concomitant]
     Active Substance: ESTRADIOL

REACTIONS (4)
  - Influenza like illness [None]
  - Myocardial infarction [None]
  - Arterial therapeutic procedure [None]
  - Post procedural complication [None]
